FAERS Safety Report 9425396 (Version 1)
Quarter: 2013Q3

REPORT INFORMATION
  Report Type: Report from Study
  Country: IT (occurrence: IT)
  Receive Date: 20130729
  Receipt Date: 20130729
  Transmission Date: 20140515
  Serious: Yes (Other)
  Sender: FDA-Public Use
  Company Number: IT-BAYER-2013-090628

PATIENT
  Age: 68 Year
  Sex: Male

DRUGS (2)
  1. ULTRAVIST-300 [Suspect]
     Indication: ARTERIOGRAM CORONARY
     Dosage: 70 ML, UNK
  2. ULTRAVIST-300 [Suspect]
     Indication: ARTERIOGRAM CORONARY
     Dosage: 180 ML, UNK

REACTIONS (1)
  - Ophthalmoplegia [Recovered/Resolved]
